FAERS Safety Report 6218660-1 (Version None)
Quarter: 2009Q2

REPORT INFORMATION
  Report Type: 
  Country: None (occurrence: None)
  Receive Date: 20090608
  Receipt Date: 20090601
  Transmission Date: 20091009
  Serious: Yes (Other)
  Sender: FDA-Public Use
  Company Number: US-ASTRAZENECA-2008UW28608

PATIENT
  Age: 70 Year
  Sex: Female
  Weight: 69.4 kg

DRUGS (8)
  1. ARIMIDEX [Suspect]
     Indication: BREAST CANCER RECURRENT
     Route: 048
     Dates: start: 20070501
  2. ZOMETA [Concomitant]
  3. BYSTOLIC [Concomitant]
  4. DIOVAN [Concomitant]
  5. SYNTHROID [Concomitant]
  6. LISINOPRIL [Concomitant]
  7. ATENOLOL [Concomitant]
  8. TYLENOL (CAPLET) [Concomitant]

REACTIONS (4)
  - BLOOD URINE PRESENT [None]
  - BURNING SENSATION [None]
  - HOT FLUSH [None]
  - VAGINAL DISCHARGE [None]
